FAERS Safety Report 9549489 (Version 2)
Quarter: 2014Q1

REPORT INFORMATION
  Report Type: Spontaneous
  Country: UA (occurrence: UA)
  Receive Date: 20130924
  Receipt Date: 20140120
  Transmission Date: 20141002
  Serious: Yes (Other)
  Sender: FDA-Public Use
  Company Number: UA-ASTRAZENECA-2013SE70586

PATIENT
  Age: 5 Month
  Sex: 0

DRUGS (7)
  1. MEROPENEM [Suspect]
     Indication: SEPSIS
     Route: 042
  2. MEROPENEM [Suspect]
     Indication: MYOCARDITIS INFECTIOUS
     Route: 042
  3. CEFTAZIDIME [Suspect]
     Indication: SEPSIS
  4. CEFTAZIDIME [Suspect]
     Indication: MYOCARDITIS INFECTIOUS
  5. AMIKACIN [Suspect]
     Indication: SEPSIS
  6. AMIKACIN [Suspect]
     Indication: MYOCARDITIS INFECTIOUS
  7. COLOMYCIN [Concomitant]

REACTIONS (1)
  - Drug ineffective [Recovering/Resolving]
